FAERS Safety Report 8277003-2 (Version None)
Quarter: 2012Q2

REPORT INFORMATION
  Report Type: 
  Country: None (occurrence: None)
  Receive Date: 20120412
  Receipt Date: 20120403
  Transmission Date: 20120825
  Serious: Yes (Death, Hospitalization)
  Sender: FDA-Public Use
  Company Number: US-ROCHE-1055154

PATIENT
  Sex: Female
  Weight: 63.56 kg

DRUGS (1)
  1. AVASTIN [Suspect]
     Indication: NEUROENDOCRINE CARCINOMA
     Route: 042
     Dates: start: 20101201, end: 20101201

REACTIONS (1)
  - NEUROENDOCRINE CARCINOMA [None]
